FAERS Safety Report 19087729 (Version 1)
Quarter: 2021Q2

REPORT INFORMATION
  Report Type: Report from Study
  Country: US (occurrence: US)
  Receive Date: 20210402
  Receipt Date: 20210402
  Transmission Date: 20210717
  Serious: Yes (Hospitalization, Other)
  Sender: FDA-Public Use
  Company Number: US-OTSUKA-2020_025241AA

PATIENT
  Age: 73 Year
  Sex: Male

DRUGS (1)
  1. ASTX727 [Suspect]
     Active Substance: CEDAZURIDINE\DECITABINE
     Indication: MYELODYSPLASTIC SYNDROME
     Dosage: 135MG (35 MG DECITABINE AND 100 MG CEDAZURIDINE) QD 1?5 DAYS EVERY 28?DAY CYCLE
     Route: 048
     Dates: start: 20200928

REACTIONS (5)
  - Haemoglobin decreased [Unknown]
  - Pyrexia [Recovered/Resolved]
  - Pyrexia [Unknown]
  - Scrotal abscess [Unknown]
  - Soft tissue mass [Recovered/Resolved]

NARRATIVE: CASE EVENT DATE: 20201006
